FAERS Safety Report 7999857-7 (Version None)
Quarter: 2011Q4

REPORT INFORMATION
  Report Type: 
  Country: None (occurrence: None)
  Receive Date: 20111222
  Receipt Date: 20111215
  Transmission Date: 20120403
  Serious: No
  Sender: FDA-Public Use
  Company Number: US-BIOGENIDEC-2011BI039039

PATIENT
  Age: 40 Year
  Sex: Female

DRUGS (3)
  1. JANUVIA [Concomitant]
     Indication: DIABETES MELLITUS
  2. APIDRA SOLOSTAR [Concomitant]
     Indication: DIABETES MELLITUS
  3. TYSABRI [Suspect]
     Indication: MULTIPLE SCLEROSIS
     Route: 042
     Dates: start: 20111006, end: 20111006

REACTIONS (9)
  - ADRENAL DISORDER [None]
  - HEADACHE [None]
  - NAUSEA [None]
  - DIARRHOEA [None]
  - DECREASED IMMUNE RESPONSIVENESS [None]
  - ASTHENIA [None]
  - DIVERTICULITIS [None]
  - OPTIC NEURITIS [None]
  - ENDOCRINE DISORDER [None]
